FAERS Safety Report 25710212 (Version 1)
Quarter: 2025Q3

REPORT INFORMATION
  Report Type: Spontaneous
  Country: EU (occurrence: EU)
  Receive Date: 20250821
  Receipt Date: 20250821
  Transmission Date: 20251020
  Serious: Yes (Death, Hospitalization)
  Sender: RANBAXY
  Company Number: EU-SUN PHARMACEUTICAL INDUSTRIES LTD-2025RR-523668

PATIENT
  Age: 83 Year
  Sex: Female

DRUGS (3)
  1. DONEPEZIL [Suspect]
     Active Substance: DONEPEZIL
     Indication: Dementia Alzheimer^s type
     Dosage: 1 BREAKFAST TABLET
     Route: 048
     Dates: start: 20240510, end: 20241103
  2. PAROXETINE [Suspect]
     Active Substance: PAROXETINE
     Indication: Depression
     Dosage: 1 TABLET DINNER
     Route: 048
     Dates: start: 20240628, end: 20241030
  3. TRAZODONE [Suspect]
     Active Substance: TRAZODONE HYDROCHLORIDE
     Indication: Dementia Alzheimer^s type
     Dosage: 1 TABLET AT DINNER
     Route: 048
     Dates: start: 20240709, end: 20241108

REACTIONS (3)
  - Hepatic cytolysis [Fatal]
  - Hyperbilirubinaemia [Fatal]
  - Hypocoagulable state [Fatal]

NARRATIVE: CASE EVENT DATE: 20241006
